FAERS Safety Report 9631293 (Version 2)
Quarter: 2013Q4

REPORT INFORMATION
  Report Type: Spontaneous
  Country: DK (occurrence: None)
  Receive Date: 20131016
  Receipt Date: 20131126
  Transmission Date: 20140711
  Serious: Yes (Hospitalization, Disabling)
  Sender: FDA-Public Use
  Company Number: FK201304508

PATIENT
  Age: 62 Year
  Sex: Female

DRUGS (2)
  1. OXALIPLATIN [Suspect]
     Indication: COLORECTAL CANCER
  2. XELODA [Suspect]
     Indication: COLORECTAL CANCER

REACTIONS (4)
  - Myalgia [None]
  - Muscular weakness [None]
  - Polymyositis [None]
  - Myopathy toxic [None]
